FAERS Safety Report 24361516 (Version 1)
Quarter: 2024Q3

REPORT INFORMATION
  Report Type: Spontaneous
  Country: IN (occurrence: IN)
  Receive Date: 20240925
  Receipt Date: 20240925
  Transmission Date: 20241017
  Serious: Yes (Hospitalization)
  Sender: STRIDES
  Company Number: IN-STRIDES ARCOLAB LIMITED-2024SP012260

PATIENT

DRUGS (4)
  1. AMOXICILLIN [Suspect]
     Active Substance: AMOXICILLIN
     Indication: Pyoderma
     Dosage: UNK
     Route: 065
  2. PENICILLIN G [Suspect]
     Active Substance: PENICILLIN G
     Indication: Pyoderma
     Dosage: UNK, EVERY 6 HRS
     Route: 051
  3. AMIKACIN [Suspect]
     Active Substance: AMIKACIN
     Indication: Pyoderma
     Dosage: UNK
     Route: 065
  4. CETIRIZINE [Concomitant]
     Active Substance: CETIRIZINE HYDROCHLORIDE
     Indication: Product used for unknown indication
     Dosage: UNK
     Route: 065

REACTIONS (1)
  - Drug reaction with eosinophilia and systemic symptoms [Unknown]
